FAERS Safety Report 15060633 (Version 4)
Quarter: 2018Q3

REPORT INFORMATION
  Report Type: Spontaneous
  Country: EC (occurrence: EC)
  Receive Date: 20180625
  Receipt Date: 20180926
  Transmission Date: 20181010
  Serious: Yes (Hospitalization)
  Sender: FDA-Public Use
  Company Number: EC-COLLEGIUM PHARMACEUTICAL, INC.-EC-2018DEP001311

PATIENT
  Age: 47 Year
  Sex: Female

DRUGS (2)
  1. TRAMAL [Concomitant]
     Active Substance: TRAMADOL
     Indication: PRODUCT USED FOR UNKNOWN INDICATION
     Dosage: UNK
  2. TAPENTADOL HYDROCHLORIDE [Suspect]
     Active Substance: TAPENTADOL HYDROCHLORIDE
     Indication: ARTHRALGIA
     Dosage: 50 MG, BID
     Route: 048
     Dates: start: 20180610, end: 20180612

REACTIONS (5)
  - Laryngeal oedema [Unknown]
  - Depression [Unknown]
  - Cardiac discomfort [Unknown]
  - Respiratory disorder [Unknown]
  - Rash [Unknown]
